FAERS Safety Report 23869842 (Version 1)
Quarter: 2024Q2

REPORT INFORMATION
  Report Type: Spontaneous
  Country: US (occurrence: None)
  Receive Date: 20240517
  Receipt Date: 20240517
  Transmission Date: 20240716
  Serious: Yes (Hospitalization, Other)
  Sender: FDA-Public Use
  Company Number: 2024A113637

PATIENT
  Age: 56 Year
  Sex: Male
  Weight: 82 kg

DRUGS (9)
  1. OMEPRAZOLE [Suspect]
     Active Substance: DONEPEZIL HYDROCHLORIDE\OMEPRAZOLE\OMEPRAZOLE MAGNESIUM
     Route: 048
  2. CARBOPLATIN [Suspect]
     Active Substance: CARBOPLATIN
     Indication: Adenocarcinoma
     Dosage: 10MG/ML
     Route: 042
     Dates: start: 20240328, end: 20240328
  3. CABAZITAXEL [Suspect]
     Active Substance: CABAZITAXEL
  4. CHOLECALCIFEROL [Concomitant]
     Active Substance: CHOLECALCIFEROL
     Dates: start: 20201217
  5. DOCUSATE [Concomitant]
     Active Substance: DOCUSATE
  6. GABAPENTIN [Concomitant]
     Active Substance: GABAPENTIN
     Dates: start: 20221106
  7. HYDROCORTISONE [Concomitant]
     Active Substance: HYDROCORTISONE
  8. LACTULOSE [Concomitant]
     Active Substance: LACTULOSE
  9. MAGNESIUM OXIDE [Concomitant]
     Active Substance: MAGNESIUM OXIDE

REACTIONS (19)
  - Malignant neoplasm progression [Unknown]
  - Metastases to peritoneum [Not Recovered/Not Resolved]
  - Pulmonary embolism [Not Recovered/Not Resolved]
  - Hypertransaminasaemia [Not Recovered/Not Resolved]
  - Thrombocytopenia [Unknown]
  - Pruritus [Unknown]
  - Chills [Unknown]
  - Feeling cold [Unknown]
  - Hypoxia [Unknown]
  - Dyspnoea [Unknown]
  - Rash maculo-papular [Unknown]
  - Pyrexia [Unknown]
  - Hypotension [Unknown]
  - Anaemia [Unknown]
  - Dyspnoea [Unknown]
  - Chest discomfort [Unknown]
  - Renal pain [Unknown]
  - Back pain [Unknown]
  - Bone lesion [Unknown]

NARRATIVE: CASE EVENT DATE: 20240410
